FAERS Safety Report 5941669-X (Version None)
Quarter: 2008Q4

REPORT INFORMATION
  Report Type: 
  Country: None (occurrence: None)
  Receive Date: 20081105
  Receipt Date: 20081029
  Transmission Date: 20090506
  Serious: Yes (Hospitalization)
  Sender: FDA-Public Use
  Company Number: CH-ELI_LILLY_AND_COMPANY-CH200810005237

PATIENT
  Age: 31 Year
  Sex: Female

DRUGS (9)
  1. FLUCTINE [Suspect]
     Dosage: 60 MG, DAILY (1/D)
     Route: 048
     Dates: start: 20050101, end: 20080827
  2. LAMICTAL [Concomitant]
     Dosage: 200 MG, DAILY (1/D)
     Route: 048
     Dates: start: 20070101, end: 20080101
  3. LAMICTAL [Concomitant]
     Dosage: 250 MG, DAILY (1/D)
     Route: 048
     Dates: start: 20080101
  4. SEROQUEL [Concomitant]
     Dosage: 300 MG, DAILY (1/D)
     Route: 048
     Dates: start: 20070101
  5. SURMONTIL [Concomitant]
     Dosage: 50 MG, DAILY (1/D)
     Route: 048
     Dates: start: 20080820, end: 20080905
  6. MSR ^MUNDIPHARMA^ [Concomitant]
     Dosage: 60 MG, DAILY (1/D)
     Route: 048
     Dates: start: 20070101, end: 20080907
  7. MSR ^MUNDIPHARMA^ [Concomitant]
     Dosage: 40 MG, DAILY (1/D)
     Route: 048
     Dates: start: 20080908
  8. NOPIL [Interacting]
     Indication: URINARY TRACT INFECTION
     Dosage: 4800 MG, DAILY (1/D)
     Route: 048
     Dates: start: 20080821, end: 20080827
  9. FERRUM HAUSMANN [Concomitant]
     Dosage: 100 MG, DAILY (1/D)
     Route: 048
     Dates: start: 20080807

REACTIONS (8)
  - AGITATION [None]
  - ANXIETY [None]
  - DRUG INTERACTION [None]
  - GRAND MAL CONVULSION [None]
  - HOSPITALISATION [None]
  - MYOCLONUS [None]
  - PARAESTHESIA [None]
  - TREMOR [None]
